FAERS Safety Report 13540007 (Version 1)
Quarter: 2017Q2

REPORT INFORMATION
  Report Type: Spontaneous
  Country: IL (occurrence: IL)
  Receive Date: 20170512
  Receipt Date: 20170512
  Transmission Date: 20170830
  Serious: Yes (Other)
  Sender: FDA-Public Use
  Company Number: IL-GLAXOSMITHKLINE-IL2017GSK069380

PATIENT
  Age: 74 Year
  Sex: Male

DRUGS (1)
  1. MALARONE [Suspect]
     Active Substance: ATOVAQUONE\PROGUANIL HYDROCHLORIDE
     Indication: MALARIA PROPHYLAXIS
     Route: 048

REACTIONS (6)
  - Acute kidney injury [Unknown]
  - Hepatitis [Unknown]
  - Drug reaction with eosinophilia and systemic symptoms [Unknown]
  - Rash [Unknown]
  - Pancreatitis [Unknown]
  - Thrombocytopenia [Unknown]
